FAERS Safety Report 25607760 (Version 1)
Quarter: 2025Q3

REPORT INFORMATION
  Report Type: Spontaneous
  Country: US (occurrence: US)
  Receive Date: 20250725
  Receipt Date: 20250725
  Transmission Date: 20251021
  Serious: Yes (Hospitalization)
  Sender: NOVARTIS
  Company Number: US-002147023-NVSC2025US117567

PATIENT
  Sex: Female

DRUGS (2)
  1. LETROZOLE [Suspect]
     Active Substance: LETROZOLE
     Indication: Product used for unknown indication
     Route: 065
  2. IBRANCE [Suspect]
     Active Substance: PALBOCICLIB
     Indication: Breast cancer
     Dosage: 125 MG, QD (FOR 21 DAYS)
     Route: 048
     Dates: start: 201807

REACTIONS (5)
  - Bone neoplasm [Unknown]
  - Dry eye [Unknown]
  - Fall [Unknown]
  - COVID-19 [Recovered/Resolved]
  - Arthralgia [Unknown]
